FAERS Safety Report 7150556-3 (Version None)
Quarter: 2010Q4

REPORT INFORMATION
  Report Type: 
  Country: None (occurrence: None)
  Receive Date: 20101210
  Receipt Date: 20101207
  Transmission Date: 20110411
  Serious: Yes (Death)
  Sender: FDA-Public Use
  Company Number: FR-B.I. PHARMACEUTICALS,INC./RIDGEFIELD-2010-FF-00845FF

PATIENT
  Sex: Male
  Weight: 62 kg

DRUGS (8)
  1. SPIRIVA [Suspect]
     Dosage: 90 MCG
     Route: 048
     Dates: start: 20101020, end: 20101020
  2. SPIRIVA [Suspect]
     Dosage: 18 MCG
     Route: 055
  3. NEXIUM [Concomitant]
     Dosage: 20 MG
  4. SERETIDE [Concomitant]
     Dosage: 1000 MCG
  5. LOXEN [Concomitant]
     Dosage: 100 MG
  6. SERESTA [Concomitant]
     Dosage: 10 MG
  7. MEPRONIZINE [Concomitant]
  8. ATHYMIL [Concomitant]
     Dosage: 30 MG

REACTIONS (3)
  - DEATH [None]
  - DRUG DISPENSING ERROR [None]
  - INCORRECT ROUTE OF DRUG ADMINISTRATION [None]
